FAERS Safety Report 7456464-2 (Version None)
Quarter: 2011Q2

REPORT INFORMATION
  Report Type: 
  Country: None (occurrence: None)
  Receive Date: 20110503
  Receipt Date: 20110427
  Transmission Date: 20111010
  Serious: No
  Sender: FDA-Public Use
  Company Number: US-BAYER-2011-037260

PATIENT
  Age: 40 Year
  Sex: Female

DRUGS (4)
  1. FLUOXETINE HCL [Concomitant]
  2. AVELOX [Suspect]
     Indication: SINUSITIS
     Dosage: 400 MG, QD
     Dates: start: 20110425
  3. AVELOX [Suspect]
     Indication: UPPER RESPIRATORY TRACT INFECTION
  4. ATENOLOL [Concomitant]

REACTIONS (2)
  - NAUSEA [None]
  - PAROSMIA [None]
